FAERS Safety Report 13360351 (Version 4)
Quarter: 2019Q3

REPORT INFORMATION
  Report Type: Spontaneous
  Country: IL (occurrence: IL)
  Receive Date: 20170322
  Receipt Date: 20190822
  Transmission Date: 20191004
  Serious: Yes (Other)
  Sender: FDA-Public Use
  Company Number: IL-TEVA-752467USA

PATIENT
  Age: 31 Year
  Sex: Female

DRUGS (1)
  1. POSTINOR LIFE [Suspect]
     Active Substance: LEVONORGESTREL
     Indication: POST COITAL CONTRACEPTION
     Route: 065
     Dates: start: 20170223, end: 20170223

REACTIONS (5)
  - Ultrasound scan abnormal [Recovered/Resolved]
  - Nausea [Unknown]
  - Fatigue [Unknown]
  - Maternal exposure during pregnancy [Unknown]
  - Dizziness [Unknown]

NARRATIVE: CASE EVENT DATE: 201702
